FAERS Safety Report 7539802-1 (Version None)
Quarter: 2011Q2

REPORT INFORMATION
  Report Type: 
  Country: None (occurrence: None)
  Receive Date: 20110610
  Receipt Date: 20110607
  Transmission Date: 20111010
  Serious: Yes (Death)
  Sender: FDA-Public Use
  Company Number: PHHY2011US24805

PATIENT
  Sex: Female
  Weight: 56 kg

DRUGS (8)
  1. GABAPENTIN [Concomitant]
     Route: 048
  2. HYDROCHLOROTHIAZIDE [Concomitant]
     Indication: AORTIC STENOSIS
  3. METOPROLOL SUCCINATE [Concomitant]
  4. EXJADE [Suspect]
     Indication: IRON METABOLISM DISORDER
     Dosage: 500 MG, DAILY
     Route: 048
     Dates: start: 20090218, end: 20110220
  5. EXJADE [Suspect]
     Indication: IRON OVERLOAD
  6. ALLOPURINOL [Concomitant]
     Indication: NEUROPATHY PERIPHERAL
  7. DILTIAZEM [Concomitant]
     Indication: BLOOD PRESSURE INCREASED
     Route: 048
  8. LEVOTHYROXINE SODIUM [Concomitant]
     Indication: HYPOTHYROIDISM

REACTIONS (3)
  - NEOPLASM MALIGNANT [None]
  - NEOPLASM PROGRESSION [None]
  - AORTIC STENOSIS [None]
